FAERS Safety Report 8308669-6 (Version None)
Quarter: 2012Q2

REPORT INFORMATION
  Report Type: 
  Country: None (occurrence: None)
  Receive Date: 20120424
  Receipt Date: 20120418
  Transmission Date: 20120825
  Serious: Yes (Other)
  Sender: FDA-Public Use
  Company Number: US-PFIZER INC-2012097146

PATIENT
  Age: 65 Year
  Sex: Male
  Weight: 97.506 kg

DRUGS (1)
  1. CHANTIX [Suspect]
     Indication: SMOKING CESSATION THERAPY
     Dosage: UNK
     Route: 048
     Dates: start: 20120401, end: 20120417

REACTIONS (7)
  - HYPERHIDROSIS [None]
  - MIDDLE INSOMNIA [None]
  - SLEEP DISORDER [None]
  - EMOTIONAL DISORDER [None]
  - RESTLESSNESS [None]
  - DEPRESSION [None]
  - NIGHTMARE [None]
